FAERS Safety Report 7883418-4 (Version None)
Quarter: 2011Q4

REPORT INFORMATION
  Report Type: 
  Country: None (occurrence: None)
  Receive Date: 20111031
  Receipt Date: 20111017
  Transmission Date: 20120403
  Serious: Yes (Other)
  Sender: FDA-Public Use
  Company Number: TUK2011A00174

PATIENT
  Age: 56 Year
  Sex: Female

DRUGS (7)
  1. GLIMEPIRIDE [Concomitant]
  2. TRAMADOL HCL [Concomitant]
  3. SYMBICORT (FORMOTEROL FUMARATE, BODESONIDE) [Concomitant]
  4. ACTOS [Suspect]
     Indication: PRODUCT USED FOR UNKNOWN INDICATION
     Dosage: (15 MG) ORAL
     Route: 048
     Dates: start: 20050713, end: 20070924
  5. HYDROXOCOBALAMIN [Concomitant]
  6. METFORMIN HCL [Concomitant]
  7. SITAGLIPTIN [Concomitant]

REACTIONS (1)
  - BLADDER CANCER [None]
